FAERS Safety Report 6529649-7 (Version None)
Quarter: 2010Q1

REPORT INFORMATION
  Report Type: 
  Country: None (occurrence: None)
  Receive Date: 20100104
  Receipt Date: 20091216
  Transmission Date: 20100710
  Serious: Yes (Other)
  Sender: FDA-Public Use
  Company Number: 003008

PATIENT
  Age: 55 Year
  Sex: 0
  Weight: 78 kg

DRUGS (12)
  1. MACUGEN [Suspect]
     Indication: DIABETIC RETINAL OEDEMA
     Dates: start: 20080108, end: 20081213
  2. INSULIN [Concomitant]
  3. METFORMIN HCL [Suspect]
  4. MULTIVITAMINS (ASCORBIC ACID, ERGOCALCIFEROL, FOLIC ACID, NICOTINAMIDE [Concomitant]
  5. ENALAPRIL MALEATE [Suspect]
  6. CALCIUM CARBONATE [Concomitant]
  7. TROPICAMIDE [Concomitant]
  8. PROPARACAINE HCL [Concomitant]
  9. OFLOXACIN [Suspect]
  10. POVIDONE IODINE [Concomitant]
  11. LIDOCAINE [Concomitant]
  12. TIMOLOL MALEATE [Suspect]

REACTIONS (7)
  - ANGINA PECTORIS [None]
  - ANGLE CLOSURE GLAUCOMA [None]
  - CATARACT [None]
  - CORONARY ARTERY DISEASE [None]
  - DIABETIC NEPHROPATHY [None]
  - GASTRITIS [None]
  - PERIARTHRITIS [None]
